FAERS Safety Report 6761482-3 (Version None)
Quarter: 2010Q2

REPORT INFORMATION
  Report Type: 
  Country: None (occurrence: None)
  Receive Date: 20100607
  Receipt Date: 20100527
  Transmission Date: 20101027
  Serious: Yes (Death, Other)
  Sender: FDA-Public Use
  Company Number: AXC-2010-000079

PATIENT
  Sex: Male

DRUGS (2)
  1. PHOTOFRIN [Suspect]
     Indication: NON-SMALL CELL LUNG CANCER STAGE IIIB
     Dosage: 2 MG/KG BODY WEIGHT, SINGLE, INTRAVENOUS
     Route: 042
     Dates: start: 20030205, end: 20030205
  2. GEMCITABINE [Suspect]
     Indication: NON-SMALL CELL LUNG CANCER STAGE IIIB

REACTIONS (4)
  - BRONCHIAL OBSTRUCTION [None]
  - DYSPHONIA [None]
  - LOWER RESPIRATORY TRACT INFLAMMATION [None]
  - WEIGHT DECREASED [None]
